FAERS Safety Report 6545750-6 (Version None)
Quarter: 2010Q1

REPORT INFORMATION
  Report Type: 
  Country: None (occurrence: None)
  Receive Date: 20100121
  Receipt Date: 20100111
  Transmission Date: 20100710
  Serious: Yes (Death)
  Sender: FDA-Public Use
  Company Number: TW-BAXTER-2009BH018476

PATIENT
  Sex: Female

DRUGS (5)
  1. DIANEAL [Suspect]
     Indication: PERITONEAL DIALYSIS
     Route: 033
     Dates: start: 20091101
  2. DIANEAL [Suspect]
     Route: 033
     Dates: start: 20090101, end: 20091101
  3. DIANEAL [Suspect]
     Route: 033
     Dates: start: 20091101
  4. EXTRANEAL [Suspect]
     Indication: PERITONEAL DIALYSIS
     Route: 033
     Dates: start: 20091101
  5. EXTRANEAL [Suspect]
     Route: 033
     Dates: start: 20090101, end: 20091101

REACTIONS (1)
  - DEATH [None]
